FAERS Safety Report 8790291 (Version 1)
Quarter: 2012Q4

REPORT INFORMATION
  Report Type: 
  Country: US (occurrence: US)
  Receive Date: 20120917
  Receipt Date: 20120917
  Transmission Date: 20130627
  Serious: Yes (Other)
  Sender: FDA-Public Use
  Company Number: PHHY2012US079421

PATIENT
  Age: 6 Year
  Sex: Female

DRUGS (4)
  1. CICLOSPORIN [Suspect]
     Indication: IMMUNOSUPPRESSANT DRUG THERAPY
  2. MYCOPHENOLATE MOFETIL [Suspect]
     Indication: IMMUNOSUPPRESSANT DRUG THERAPY
  3. GRANULOCYTE COLONY STIMULATING FACTOR [Concomitant]
  4. SULFAMETHOXAZOLE W/TRIMETHOPRIM [Concomitant]
     Indication: PROPHYLAXIS

REACTIONS (5)
  - Mucosal inflammation [Recovered/Resolved]
  - Cytomegalovirus infection [Recovered/Resolved]
  - Acute graft versus host disease in intestine [Recovered/Resolved]
  - Decreased appetite [Unknown]
  - Toxicity to various agents [None]
